FAERS Safety Report 8512520-9 (Version None)
Quarter: 2012Q3

REPORT INFORMATION
  Report Type: 
  Country: None (occurrence: None)
  Receive Date: 20120716
  Receipt Date: 20120706
  Transmission Date: 20120928
  Serious: Yes (Other)
  Sender: FDA-Public Use
  Company Number: FR-VIIV HEALTHCARE LIMITED-B0813692A

PATIENT
  Sex: Male

DRUGS (2)
  1. ABACAVIR SULFATE/LAMIVUDINE [Suspect]
     Indication: HIV INFECTION
     Dosage: 1TAB PER DAY
     Route: 048
     Dates: start: 20110101
  2. ISENTRESS [Suspect]
     Indication: HIV INFECTION
     Dosage: 1TAB TWICE PER DAY
     Route: 048
     Dates: start: 20110101

REACTIONS (13)
  - VISION BLURRED [None]
  - INSOMNIA [None]
  - MALAISE [None]
  - HOT FLUSH [None]
  - MYALGIA [None]
  - BLOOD PRESSURE DECREASED [None]
  - TONGUE ERUPTION [None]
  - DYSPNOEA [None]
  - GASTROINTESTINAL PAIN [None]
  - HEADACHE [None]
  - GASTROINTESTINAL DISORDER [None]
  - NAUSEA [None]
  - DISTURBANCE IN ATTENTION [None]
